FAERS Safety Report 6535145-3 (Version None)
Quarter: 2010Q1

REPORT INFORMATION
  Report Type: 
  Country: None (occurrence: None)
  Receive Date: 20100113
  Receipt Date: 20100105
  Transmission Date: 20100710
  Serious: Yes (Other)
  Sender: FDA-Public Use
  Company Number: GB-RANBAXY-2010RR-30305

PATIENT
  Age: 83 Year
  Sex: Female

DRUGS (10)
  1. PARACETAMOL [Suspect]
     Indication: CANCER PAIN
  2. TRAMADOL HCL [Suspect]
     Indication: CANCER PAIN
     Dosage: 50 MG, UNK
  3. CODEINE [Suspect]
     Indication: CANCER PAIN
  4. FENTANYL-100 [Suspect]
     Indication: CANCER PAIN
     Dosage: 200 UG, UNK
  5. DEXTROMORAMIDE [Suspect]
     Indication: CANCER PAIN
     Dosage: 5 MG, UNK
  6. METHADONE [Suspect]
     Indication: COUGH
  7. MORPHINE SULPHATE [Suspect]
     Indication: CANCER PAIN
     Dosage: 5 MG, UNK
  8. OXYCODONE HCL [Suspect]
     Indication: CANCER PAIN
     Dosage: 2.5 MG, UNK
  9. CELECOXIB [Concomitant]
  10. PAMIDRONIC ACID [Concomitant]

REACTIONS (1)
  - DRUG HYPERSENSITIVITY [None]
